FAERS Safety Report 4660524-9 (Version None)
Quarter: 2005Q2

REPORT INFORMATION
  Report Type: 
  Country: None (occurrence: None)
  Receive Date: 20050511
  Receipt Date: 20050511
  Transmission Date: 20051028
  Serious: No
  Sender: FDA-Public Use
  Company Number: None

PATIENT
  Age: 48 Year
  Sex: Female
  Weight: 65.7716 kg

DRUGS (3)
  1. ESTRADIOL TRANSDERMAL   0.05MG/DAY   MYLAN PHARMACEUTICALS [Suspect]
     Indication: HORMONE REPLACEMENT THERAPY
     Dosage: 0.05 PER DAY   1 EVERY 7 DAYS   TRANSDERMAL
     Route: 062
  2. ESTRADIOL TRANSDERMAL [Suspect]
  3. ESTRADIOL TRANSDERMAL [Suspect]

REACTIONS (4)
  - DRUG INEFFECTIVE [None]
  - INCORRECT DOSE ADMINISTERED [None]
  - PHARMACEUTICAL PRODUCT COMPLAINT [None]
  - THERAPEUTIC RESPONSE UNEXPECTED WITH DRUG SUBSTITUTION [None]
